FAERS Safety Report 13643501 (Version 1)
Quarter: 2017Q2

REPORT INFORMATION
  Report Type: Spontaneous
  Country: CA (occurrence: CA)
  Receive Date: 20170612
  Receipt Date: 20170612
  Transmission Date: 20170830
  Serious: Yes (Hospitalization, Disabling, Other)
  Sender: FDA-Public Use
  Company Number: CA-JNJFOC-20170608986

PATIENT
  Age: 84 Year
  Sex: Male

DRUGS (1)
  1. XARELTO [Suspect]
     Active Substance: RIVAROXABAN
     Indication: THROMBOSIS PROPHYLAXIS
     Route: 048

REACTIONS (7)
  - Headache [Recovering/Resolving]
  - Hemiparesis [Recovering/Resolving]
  - Dysphagia [Recovering/Resolving]
  - Craniectomy [Recovering/Resolving]
  - Confusional state [Recovering/Resolving]
  - Subdural haematoma [Recovering/Resolving]
  - Subdural haematoma evacuation [Recovering/Resolving]
